FAERS Safety Report 12963225 (Version 3)
Quarter: 2017Q1

REPORT INFORMATION
  Report Type: Spontaneous
  Country: US (occurrence: US)
  Receive Date: 20161122
  Receipt Date: 20170324
  Transmission Date: 20170428
  Serious: No
  Sender: FDA-Public Use
  Company Number: PHEH2016US030517

PATIENT
  Sex: Female
  Weight: 63.49 kg

DRUGS (2)
  1. ZOFRAN [Suspect]
     Active Substance: ONDANSETRON HYDROCHLORIDE
     Dosage: 4 MG, BID
     Route: 048
     Dates: start: 20021107, end: 20021223
  2. ZOFRAN [Suspect]
     Active Substance: ONDANSETRON HYDROCHLORIDE
     Indication: VOMITING IN PREGNANCY
     Dosage: 4 MG, BID
     Route: 048
     Dates: start: 20021005, end: 20021021

REACTIONS (3)
  - Injury [Unknown]
  - Maternal exposure during pregnancy [Unknown]
  - Product use issue [Unknown]
